FAERS Safety Report 19856719 (Version 2)
Quarter: 2021Q4

REPORT INFORMATION
  Report Type: Spontaneous
  Country: US (occurrence: US)
  Receive Date: 20210920
  Receipt Date: 20211004
  Transmission Date: 20220303
  Serious: Yes (Hospitalization, Other)
  Sender: FDA-Public Use
  Company Number: US-GLAXOSMITHKLINE-US2021GSK196745

PATIENT
  Age: 15 Year
  Sex: Female

DRUGS (2)
  1. BUPROPION [Suspect]
     Active Substance: BUPROPION
     Indication: Product used for unknown indication
     Dosage: UNK
     Route: 048
  2. SERTRALINE [Suspect]
     Active Substance: SERTRALINE HYDROCHLORIDE
     Indication: Product used for unknown indication
     Dosage: UNK
     Route: 048

REACTIONS (9)
  - Encephalopathy [Recovered/Resolved]
  - Generalised tonic-clonic seizure [Recovered/Resolved]
  - Metabolic encephalopathy [Recovered/Resolved]
  - Anterograde amnesia [Recovered/Resolved]
  - Sedation [Recovered/Resolved]
  - Myoclonus [Recovered/Resolved]
  - Hypometabolism [Recovered/Resolved]
  - Intentional overdose [Unknown]
  - Drug interaction [Unknown]
